FAERS Safety Report 7604277-0 (Version None)
Quarter: 2011Q3

REPORT INFORMATION
  Report Type: 
  Country: None (occurrence: None)
  Receive Date: 20110712
  Receipt Date: 20110627
  Transmission Date: 20111222
  Serious: Yes (Other)
  Sender: FDA-Public Use
  Company Number: IR-WATSON-2011-10124

PATIENT
  Age: 2 Year
  Sex: Male

DRUGS (2)
  1. PREDNISOLONE [Suspect]
     Indication: HENOCH-SCHONLEIN PURPURA
     Dosage: 2 MG/KG, DAILY
     Route: 048
  2. MYCOPHENOLATE MEFETIL [Suspect]
     Indication: HENOCH-SCHONLEIN PURPURA
     Dosage: 30 MG/KG, DAILY
     Route: 065

REACTIONS (4)
  - CUSHINGOID [None]
  - WEIGHT INCREASED [None]
  - DIARRHOEA [None]
  - DRUG INEFFECTIVE [None]
